FAERS Safety Report 22310074 (Version 1)
Quarter: 2023Q2

REPORT INFORMATION
  Report Type: Spontaneous
  Country: AT (occurrence: AT)
  Receive Date: 20230511
  Receipt Date: 20230511
  Transmission Date: 20230722
  Serious: Yes (Other)
  Sender: FDA-Public Use
  Company Number: None

PATIENT
  Age: 36 Year
  Sex: Female

DRUGS (6)
  1. INTRALIPID [Suspect]
     Active Substance: EGG PHOSPHOLIPIDS\GLYCERIN\SOYBEAN OIL
     Indication: Product used for unknown indication
     Dosage: 8 MG INTRALIPID MIXED WITH SODIUM CHLORIDE SOLUTION
     Dates: start: 20210916
  2. INTRALIPID [Suspect]
     Active Substance: EGG PHOSPHOLIPIDS\GLYCERIN\SOYBEAN OIL
     Dosage: 8 MG INTRALIPID MIXED WITH SODIUM CHLORIDE SOLUTION
     Dates: start: 20210729
  3. INTRALIPID [Suspect]
     Active Substance: EGG PHOSPHOLIPIDS\GLYCERIN\SOYBEAN OIL
     Dosage: 8 MG INTRALIPID MIXED WITH SODIUM CHLORIDE SOLUTION
     Dates: start: 20210813
  4. INTRALIPID [Suspect]
     Active Substance: EGG PHOSPHOLIPIDS\GLYCERIN\SOYBEAN OIL
     Dosage: 8 MG INTRALIPID MIXED WITH SODIUM CHLORIDE SOLUTION
     Dates: start: 20211007
  5. INTRALIPID [Suspect]
     Active Substance: EGG PHOSPHOLIPIDS\GLYCERIN\SOYBEAN OIL
     Dosage: 8 MG INTRALIPID MIXED WITH SODIUM CHLORIDE SOLUTION
     Dates: start: 20211104
  6. INTRALIPID [Suspect]
     Active Substance: EGG PHOSPHOLIPIDS\GLYCERIN\SOYBEAN OIL
     Dosage: 8 MG INTRALIPID MIXED WITH SODIUM CHLORIDE SOLUTION
     Dates: start: 20210715

REACTIONS (2)
  - Epilepsy [Not Recovered/Not Resolved]
  - Intracranial pressure increased [None]

NARRATIVE: CASE EVENT DATE: 20211201
